FAERS Safety Report 20221810 (Version 1)
Quarter: 2021Q4

REPORT INFORMATION
  Report Type: Spontaneous
  Country: JP (occurrence: None)
  Receive Date: 20211223
  Receipt Date: 20211223
  Transmission Date: 20220303
  Serious: Yes (Other)
  Sender: FDA-Public Use
  Company Number: 2021A885169

PATIENT
  Sex: Male

DRUGS (2)
  1. LOKELMA [Suspect]
     Active Substance: SODIUM ZIRCONIUM CYCLOSILICATE
     Indication: Blood potassium increased
     Dosage: DOSE UNKNOWN
     Route: 048
  2. LOKELMA [Suspect]
     Active Substance: SODIUM ZIRCONIUM CYCLOSILICATE
     Indication: Blood potassium increased
     Dosage: DOSE UNKNOWN
     Route: 048

REACTIONS (1)
  - Pleural effusion [Recovering/Resolving]
